FAERS Safety Report 17653202 (Version 1)
Quarter: 2020Q2

REPORT INFORMATION
  Report Type: Report from Study
  Country: US (occurrence: US)
  Receive Date: 20200410
  Receipt Date: 20200410
  Transmission Date: 20200713
  Serious: Yes (Hospitalization)
  Sender: FDA-Public Use
  Company Number: US-ROCHE-2575667

PATIENT
  Sex: Female

DRUGS (1)
  1. OCREVUS [Suspect]
     Active Substance: OCRELIZUMAB
     Indication: PRIMARY PROGRESSIVE MULTIPLE SCLEROSIS
     Dosage: YES?DATE OF TREATMENT: 13/MAR/2019, 26/MAR/2019
     Route: 065
     Dates: start: 20190311

REACTIONS (5)
  - Urinary tract infection [Recovered/Resolved]
  - Sepsis [Recovered/Resolved]
  - Cellulitis [Recovered/Resolved]
  - Localised infection [Recovered/Resolved]
  - Pyrexia [Recovered/Resolved]
